FAERS Safety Report 6978748-4 (Version None)
Quarter: 2010Q3

REPORT INFORMATION
  Report Type: 
  Country: None (occurrence: None)
  Receive Date: 20100913
  Receipt Date: 20100903
  Transmission Date: 20110219
  Serious: Yes (Other)
  Sender: FDA-Public Use
  Company Number: CA-ROCHE-725565

PATIENT
  Sex: Female
  Weight: 50 kg

DRUGS (5)
  1. BEVACIZUMAB [Suspect]
     Dosage: FORM: INFUSION
     Route: 042
     Dates: start: 20091126
  2. ATENOLOL [Concomitant]
     Indication: BLOOD PRESSURE
  3. PARIET [Concomitant]
     Indication: ULCER
  4. ZOLEDRONIC [Concomitant]
     Dosage: DRUG NAME REPORTED AS ECLASTA
  5. SERAX [Concomitant]

REACTIONS (9)
  - CHEST DISCOMFORT [None]
  - DYSPNOEA [None]
  - EPISTAXIS [None]
  - EYE PAIN [None]
  - NAIL DISORDER [None]
  - NASAL DISCOMFORT [None]
  - NEOPLASM PROGRESSION [None]
  - SENSORY DISTURBANCE [None]
  - VISION BLURRED [None]
